FAERS Safety Report 18013906 (Version 1)
Quarter: 2020Q3

REPORT INFORMATION
  Report Type: Spontaneous
  Country: US (occurrence: US)
  Receive Date: 20200712
  Receipt Date: 20200712
  Transmission Date: 20201103
  Serious: Yes (Other)
  Sender: FDA-Public Use
  Company Number: None

PATIENT
  Age: 34 Year
  Sex: Female
  Weight: 69.75 kg

DRUGS (1)
  1. HAND SANITIZER COLLECTIVE SCIENCE INTEGRATION [Suspect]
     Active Substance: ALCOHOL
     Indication: INFECTION PROPHYLAXIS
     Dosage: ?          OTHER STRENGTH:70 PERCENT;QUANTITY:1 DROP(S);?
     Route: 061
     Dates: start: 20200705, end: 20200706

REACTIONS (3)
  - Headache [None]
  - Product odour abnormal [None]
  - Product formulation issue [None]

NARRATIVE: CASE EVENT DATE: 20200705
